FAERS Safety Report 5782494-2 (Version None)
Quarter: 2008Q2

REPORT INFORMATION
  Report Type: 
  Country: None (occurrence: None)
  Receive Date: 20080623
  Receipt Date: 20080611
  Transmission Date: 20081010
  Serious: Yes (Other)
  Sender: FDA-Public Use
  Company Number: US-PFIZER INC-2008045486

PATIENT
  Sex: Female
  Weight: 130 kg

DRUGS (4)
  1. CHANTIX [Suspect]
     Indication: EX-SMOKER
  2. ANTIHYPERTENSIVES [Concomitant]
     Route: 048
  3. PREMARIN [Concomitant]
     Route: 048
  4. CLARINEX [Concomitant]
     Route: 048

REACTIONS (3)
  - ACCIDENT [None]
  - JOINT INJURY [None]
  - LOSS OF CONSCIOUSNESS [None]
